FAERS Safety Report 9380700 (Version 1)
Quarter: 2013Q3

REPORT INFORMATION
  Report Type: Spontaneous
  Country: US (occurrence: US)
  Receive Date: 20130702
  Receipt Date: 20130702
  Transmission Date: 20140515
  Serious: Yes (Other)
  Sender: FDA-Public Use
  Company Number: US-BAXTER-2013BAX024894

PATIENT
  Age: 88 Year
  Sex: Female

DRUGS (2)
  1. CEFEPIME INJECTION [Suspect]
     Indication: PRODUCT USED FOR UNKNOWN INDICATION
  2. 0.9% SODIUM CHLORIDE INJECTION [Suspect]
     Indication: PRODUCT USED FOR UNKNOWN INDICATION

REACTIONS (3)
  - Speech disorder [Unknown]
  - Confusional state [Unknown]
  - Mental status changes [Unknown]
